FAERS Safety Report 8995346 (Version 3)
Quarter: 2018Q4

REPORT INFORMATION
  Report Type: Spontaneous
  Country: JP (occurrence: JP)
  Receive Date: 20130102
  Receipt Date: 20181123
  Transmission Date: 20190205
  Serious: Yes (Hospitalization)
  Sender: FDA-Public Use
  Company Number: JP-ASTRAZENECA-2012SE96401

PATIENT
  Age: 87 Year
  Sex: Male

DRUGS (20)
  1. FEBURIC [Concomitant]
     Active Substance: FEBUXOSTAT
     Indication: HYPERURICAEMIA
     Route: 048
     Dates: start: 20121208
  2. MEROPEN [Suspect]
     Active Substance: MEROPENEM
     Indication: PNEUMONIA
     Route: 041
  3. AMBISOME [Suspect]
     Active Substance: AMPHOTERICIN B
     Indication: CANDIDA INFECTION
     Route: 041
     Dates: start: 20121211, end: 20121217
  4. PLATELETS [Concomitant]
     Active Substance: HUMAN PLATELET, ALLOGENIC
     Dates: start: 20121107, end: 20121107
  5. FERROMIA [Concomitant]
     Active Substance: SODIUM FERROUS CITRATE
     Indication: IRON DEFICIENCY ANAEMIA
     Route: 048
     Dates: start: 20121210
  6. TARGOCID [Suspect]
     Active Substance: TEICOPLANIN
     Route: 041
     Dates: start: 20121213, end: 20121217
  7. COVERSYL [Concomitant]
     Active Substance: PERINDOPRIL
     Indication: HYPERTENSION
     Route: 048
     Dates: start: 20121208
  8. ARTIST [Concomitant]
     Active Substance: CARVEDILOL
     Indication: HYPERTENSION
     Route: 048
     Dates: start: 20121201
  9. PERSANTINE [Concomitant]
     Active Substance: DIPYRIDAMOLE
     Indication: PROTEINURIA
     Route: 048
     Dates: start: 20121201
  10. THYRADIN S [Concomitant]
     Active Substance: LEVOTHYROXINE SODIUM
     Indication: HYPOTHYROIDISM
     Route: 048
     Dates: start: 20121110
  11. KENKETU GLOVENIN-I [Concomitant]
     Active Substance: HUMAN IMMUNOGLOBULIN G
     Indication: INFECTION
     Route: 042
     Dates: start: 20121213, end: 20121215
  12. LENDORMIN D [Concomitant]
     Active Substance: BROTIZOLAM
     Indication: INSOMNIA
     Route: 048
     Dates: start: 20121109
  13. CARDENALIN [Concomitant]
     Active Substance: DOXAZOSIN MESYLATE
     Indication: HYPERTENSION
     Route: 048
     Dates: start: 20121204
  14. BIOFERMIN R [Concomitant]
     Active Substance: BACILLUS SUBTILIS\LACTOBACILLUS ACIDOPHILUS\STREPTOCOCCUS FAECAIS
     Indication: DIARRHOEA
     Route: 048
     Dates: start: 20121108
  15. PLATELETS [Concomitant]
     Active Substance: HUMAN PLATELET, ALLOGENIC
     Dates: start: 20121219, end: 20121219
  16. LASIX [Concomitant]
     Active Substance: FUROSEMIDE
     Indication: CARDIAC FAILURE
     Route: 048
     Dates: start: 20121116
  17. MEROPEN [Suspect]
     Active Substance: MEROPENEM
     Indication: PNEUMONIA
     Route: 041
     Dates: start: 20121213, end: 20121217
  18. ALBUMIN [Concomitant]
     Active Substance: ALBUMIN HUMAN
     Indication: HYPOALBUMINAEMIA
     Route: 042
     Dates: start: 20121213, end: 20121219
  19. CONIEL [Concomitant]
     Active Substance: BENIDIPINE HYDROCHLORIDE
     Indication: HYPERTENSION
     Route: 048
     Dates: start: 20121124
  20. BENET [Concomitant]
     Active Substance: RISEDRONATE SODIUM
     Indication: OSTEOPOROSIS
     Route: 048
     Dates: start: 20121129

REACTIONS (4)
  - Platelet count decreased [Recovered/Resolved]
  - Hepatic function abnormal [Recovered/Resolved]
  - Granulocyte count decreased [Recovered/Resolved]
  - Drug eruption [Recovered/Resolved]
